FAERS Safety Report 6131864-1 (Version None)
Quarter: 2009Q1

REPORT INFORMATION
  Report Type: 
  Country: None (occurrence: None)
  Receive Date: 20090325
  Receipt Date: 20090310
  Transmission Date: 20090719
  Serious: Yes (Other)
  Sender: FDA-Public Use
  Company Number: US-PFIZER INC-2006102268

PATIENT
  Sex: Female
  Weight: 71 kg

DRUGS (9)
  1. PROVERA [Suspect]
     Indication: HORMONE REPLACEMENT THERAPY
     Dosage: 2.5 MG, UNK
     Route: 048
     Dates: start: 19950501, end: 19970101
  2. MEDROXYPROGESTERONE AND MEDROXYPROGESTERONE ACETATE [Suspect]
     Dosage: UNK
     Route: 048
     Dates: start: 19950501, end: 20030401
  3. PREMARIN [Suspect]
     Indication: HORMONE REPLACEMENT THERAPY
     Dosage: 0.625 MG, UNK
     Route: 065
     Dates: start: 19950501, end: 19970101
  4. PREMPRO [Suspect]
     Indication: HORMONE REPLACEMENT THERAPY
     Dosage: 0.625 MG, UNK
     Route: 065
     Dates: start: 19970101, end: 20030601
  5. LASIX [Concomitant]
     Dosage: UNK
     Dates: start: 20010101
  6. ALTACE [Concomitant]
     Dosage: 10 MG, UNK
     Dates: start: 20020101, end: 20040101
  7. TOPROL-XL [Concomitant]
     Dosage: 25 MG, UNK
     Dates: start: 20020101, end: 20040101
  8. COZAAR [Concomitant]
     Dosage: 50 MG, UNK
     Dates: start: 20020101
  9. ACETYLSALICYLIC ACID [Concomitant]
     Dosage: UNK
     Dates: start: 19500101

REACTIONS (1)
  - BREAST CANCER [None]
